FAERS Safety Report 14505202 (Version 1)
Quarter: 2018Q1

REPORT INFORMATION
  Report Type: Spontaneous
  Country: US (occurrence: US)
  Receive Date: 20180208
  Receipt Date: 20180208
  Transmission Date: 20180509
  Serious: Yes (Other)
  Sender: FDA-Public Use
  Company Number: US-ASTRAZENECA-2018SE04429

PATIENT
  Age: 817 Month
  Sex: Female
  Weight: 71.6 kg

DRUGS (16)
  1. ARIMIDEX [Suspect]
     Active Substance: ANASTROZOLE
     Indication: BASAL CELL CARCINOMA
     Route: 048
     Dates: start: 20171019, end: 20180103
  2. SERTRALINE [Suspect]
     Active Substance: SERTRALINE HYDROCHLORIDE
     Route: 065
  3. NEXIUM [Concomitant]
     Active Substance: ESOMEPRAZOLE MAGNESIUM
     Dosage: DAILY
  4. SERTRALINE [Suspect]
     Active Substance: SERTRALINE HYDROCHLORIDE
     Route: 065
  5. OMEGA-3 KRILL OIL [Concomitant]
     Dosage: 300MG-90MG , DAILY
     Route: 048
  6. ASPIRIN. [Concomitant]
     Active Substance: ASPIRIN
     Route: 048
  7. METFORMIN HYDROCHLORIDE. [Concomitant]
     Active Substance: METFORMIN HYDROCHLORIDE
  8. CITRACAL PLUS VITAMIN D3 [Concomitant]
     Dosage: 250 MG-500, DAILY
     Route: 048
  9. VITAMIN C [Concomitant]
     Active Substance: ASCORBIC ACID
     Route: 048
  10. PROBIOTIC [Concomitant]
     Active Substance: PROBIOTICS NOS
  11. ARIMIDEX [Suspect]
     Active Substance: ANASTROZOLE
     Indication: BASAL CELL CARCINOMA
     Dosage: 1MG, EVERY OTHER DAY, TEVA IS MANUFACTURER
     Route: 048
     Dates: start: 20170919, end: 20171018
  12. CENTRUM MULTIPLE VITAMIN [Concomitant]
     Route: 048
  13. ARIMIDEX [Suspect]
     Active Substance: ANASTROZOLE
     Indication: BASAL CELL CARCINOMA
     Route: 048
     Dates: end: 20180108
  14. MIRALAX [Concomitant]
     Active Substance: POLYETHYLENE GLYCOL 3350
  15. LOSARTAN AND HYDROCHLOROTHIAZIDE [Concomitant]
     Active Substance: HYDROCHLOROTHIAZIDE\LOSARTAN POTASSIUM
     Indication: BLOOD PRESSURE ABNORMAL
  16. CLARITIN [Concomitant]
     Active Substance: LORATADINE

REACTIONS (15)
  - Blood glucose increased [Unknown]
  - Nervousness [Unknown]
  - Oropharyngeal pain [Not Recovered/Not Resolved]
  - Paranasal sinus discomfort [Not Recovered/Not Resolved]
  - Insomnia [Unknown]
  - Seizure [Unknown]
  - Anxiety [Unknown]
  - Photopsia [Unknown]
  - Tinnitus [Unknown]
  - Increased viscosity of upper respiratory secretion [Recovered/Resolved]
  - Paraesthesia [Not Recovered/Not Resolved]
  - Erythema [Unknown]
  - Hot flush [Unknown]
  - Upper-airway cough syndrome [Unknown]
  - Blood pressure increased [Unknown]

NARRATIVE: CASE EVENT DATE: 201710
